FAERS Safety Report 16063205 (Version 1)
Quarter: 2019Q1

REPORT INFORMATION
  Report Type: Spontaneous
  Country: US (occurrence: US)
  Receive Date: 20190312
  Receipt Date: 20190312
  Transmission Date: 20190418
  Serious: No
  Sender: FDA-Public Use
  Company Number: US-SA-2019SA065863

PATIENT
  Sex: Male

DRUGS (1)
  1. TOUJEO [Suspect]
     Active Substance: INSULIN GLARGINE
     Dosage: 25 U, UNK
     Route: 065

REACTIONS (2)
  - Hypoglycaemia [Unknown]
  - Intentional product misuse [Unknown]
